FAERS Safety Report 22332135 (Version 1)
Quarter: 2023Q2

REPORT INFORMATION
  Report Type: Spontaneous
  Country: US (occurrence: US)
  Receive Date: 20230517
  Receipt Date: 20230517
  Transmission Date: 20230722
  Serious: No
  Sender: FDA-Public Use
  Company Number: US-BRISTOL-MYERS SQUIBB COMPANY-2023-068905

PATIENT
  Age: 49 Year
  Sex: Female

DRUGS (1)
  1. ZEPOSIA [Suspect]
     Active Substance: OZANIMOD HYDROCHLORIDE
     Indication: Multiple sclerosis
     Route: 048

REACTIONS (7)
  - Abdominal pain [Unknown]
  - Nausea [Unknown]
  - Diarrhoea [Unknown]
  - Depression [Unknown]
  - Anxiety [Unknown]
  - Neuralgia [Unknown]
  - Urinary hesitation [Unknown]
